FAERS Safety Report 5743831-8 (Version None)
Quarter: 2008Q2

REPORT INFORMATION
  Report Type: 
  Country: None (occurrence: None)
  Receive Date: 20080519
  Receipt Date: 20080519
  Transmission Date: 20081010
  Serious: Yes (Other)
  Sender: FDA-Public Use
  Company Number: None

PATIENT
  Age: 3 Year
  Sex: Male
  Weight: 20.4119 kg

DRUGS (1)
  1. SINGULAIR [Suspect]
     Indication: MULTIPLE ALLERGIES
     Dosage: 1 TABLET ONCE DAY PO
     Route: 048
     Dates: start: 20080402, end: 20080516

REACTIONS (6)
  - AGGRESSION [None]
  - CRYING [None]
  - ENURESIS [None]
  - FEAR [None]
  - PERSONALITY CHANGE [None]
  - SELF-INJURIOUS IDEATION [None]
